FAERS Safety Report 4854124-5 (Version None)
Quarter: 2005Q4

REPORT INFORMATION
  Report Type: 
  Country: None (occurrence: None)
  Receive Date: 20051213
  Receipt Date: 20051129
  Transmission Date: 20060501
  Serious: Yes (Life-Threatening, Hospitalization)
  Sender: FDA-Public Use
  Company Number: PAR_0432_2005

PATIENT
  Age: 56 Year
  Sex: Male

DRUGS (4)
  1. FLUOXETINE [Suspect]
     Dosage: 20 MG BID
  2. FLUOXETINE [Suspect]
     Dosage: 60 MG QDAY
  3. BUSPIRONE [Concomitant]
  4. OLANZAPINE [Concomitant]

REACTIONS (9)
  - BLOOD BICARBONATE DECREASED [None]
  - BLOOD CHLORIDE DECREASED [None]
  - BLOOD PHOSPHORUS DECREASED [None]
  - BLOOD PRESSURE INCREASED [None]
  - BLOOD UREA DECREASED [None]
  - BLOOD URIC ACID DECREASED [None]
  - INAPPROPRIATE ANTIDIURETIC HORMONE SECRETION [None]
  - SEROTONIN SYNDROME [None]
  - THERAPY NON-RESPONDER [None]
